FAERS Safety Report 6542691-5 (Version None)
Quarter: 2010Q1

REPORT INFORMATION
  Report Type: 
  Country: None (occurrence: None)
  Receive Date: 20100119
  Receipt Date: 20100115
  Transmission Date: 20100710
  Serious: Yes (Hospitalization)
  Sender: FDA-Public Use
  Company Number: US-MERCK-0910USA01146

PATIENT
  Age: 58 Year
  Sex: Female
  Weight: 65 kg

DRUGS (4)
  1. FOSAMAX [Suspect]
     Indication: PROPHYLAXIS
     Route: 048
     Dates: start: 20030122, end: 20071001
  2. FOSAMAX [Suspect]
     Route: 048
     Dates: start: 20021001
  3. FOSAMAX [Suspect]
     Indication: BONE DENSITY DECREASED
     Route: 048
     Dates: start: 20030122, end: 20071001
  4. FOSAMAX [Suspect]
     Route: 048
     Dates: start: 20021001

REACTIONS (27)
  - ADVERSE DRUG REACTION [None]
  - CHEST PAIN [None]
  - CONSTIPATION [None]
  - DERMATITIS CONTACT [None]
  - DIARRHOEA [None]
  - FALL [None]
  - FEMUR FRACTURE [None]
  - GASTRIC DISORDER [None]
  - GOITRE [None]
  - HAEMORRHAGIC ANAEMIA [None]
  - HEAD INJURY [None]
  - HEADACHE [None]
  - HYPERLIPIDAEMIA [None]
  - HYPOTHYROIDISM [None]
  - JOINT INJURY [None]
  - LIMB INJURY [None]
  - LOW TURNOVER OSTEOPATHY [None]
  - MENOPAUSE [None]
  - MUSCULOSKELETAL DISCOMFORT [None]
  - NAUSEA [None]
  - OSTEOARTHRITIS [None]
  - PAIN IN EXTREMITY [None]
  - POST-TRAUMATIC PAIN [None]
  - RASH [None]
  - SYNOVITIS [None]
  - URTICARIA [None]
  - VOMITING [None]
